FAERS Safety Report 18198371 (Version 1)
Quarter: 2020Q3

REPORT INFORMATION
  Report Type: Spontaneous
  Country: FR (occurrence: FR)
  Receive Date: 20200826
  Receipt Date: 20200826
  Transmission Date: 20201103
  Serious: Yes (Other)
  Sender: FDA-Public Use
  Company Number: FR-PFIZER INC-2020325380

PATIENT
  Age: 69 Year
  Sex: Female

DRUGS (2)
  1. SOLU?MEDROL [Suspect]
     Active Substance: METHYLPREDNISOLONE SODIUM SUCCINATE
     Route: 030
     Dates: start: 20200721
  2. MIOREL [THIOCOLCHICOSIDE] [Suspect]
     Active Substance: THIOCOLCHICOSIDE
     Indication: PAIN
     Dosage: 4 MG/2 ML
     Route: 030
     Dates: start: 20200721

REACTIONS (3)
  - Confusional state [Unknown]
  - Hypotonia [Unknown]
  - Vomiting [Unknown]

NARRATIVE: CASE EVENT DATE: 20200728
